FAERS Safety Report 9413889 (Version 1)
Quarter: 2013Q3

REPORT INFORMATION
  Report Type: Spontaneous
  Country: GB (occurrence: None)
  Receive Date: 20130718
  Receipt Date: 20130718
  Transmission Date: 20140515
  Serious: Yes (Hospitalization)
  Sender: FDA-Public Use
  Company Number: GER/UKI/13/0031767

PATIENT
  Age: 83 Year
  Sex: Female
  Weight: 80 kg

DRUGS (8)
  1. ZOLEDRONIC ACID [Suspect]
     Indication: OSTEOPOROSIS
     Dosage: STOPPED
  2. AMITRIPTYLINE (AMITRIPTYLINE) [Concomitant]
  3. CANDESARTAN (CANDESARTAN) [Concomitant]
  4. COLECALCIFEROL (COLECALCIFEROL) [Concomitant]
  5. FENTANYL (FENTANYL) [Concomitant]
  6. LEVOTHYROXINE (LEVOTHYROXINE) [Concomitant]
  7. OMEPRAZOLE (OMEPRAZOLE) [Concomitant]
  8. ROSUVASTATIN (ROSUVASTATIN) [Concomitant]

REACTIONS (3)
  - Renal failure acute [None]
  - Polydipsia [None]
  - Polyuria [None]
